FAERS Safety Report 7289940-6 (Version None)
Quarter: 2011Q1

REPORT INFORMATION
  Report Type: 
  Country: None (occurrence: None)
  Receive Date: 20110214
  Receipt Date: 20110201
  Transmission Date: 20110831
  Serious: Yes (Death)
  Sender: FDA-Public Use
  Company Number: US-JNJFOC-20110201365

PATIENT
  Age: 32 Year
  Sex: Male

DRUGS (4)
  1. INFLIXIMAB, RECOMBINANT [Suspect]
     Route: 042
  2. INFLIXIMAB, RECOMBINANT [Suspect]
     Indication: CROHN'S DISEASE
     Route: 042
  3. AZATHIOPRINE [Concomitant]
  4. ADALIMUMAB [Suspect]
     Indication: CROHN'S DISEASE

REACTIONS (6)
  - GRAFT VERSUS HOST DISEASE [None]
  - INTESTINAL ISCHAEMIA [None]
  - CONVULSION [None]
  - CARDIAC ARREST [None]
  - ACUTE MYELOID LEUKAEMIA [None]
  - HERPES SIMPLEX [None]
